FAERS Safety Report 8032123 (Version 3)
Quarter: 2013Q2

REPORT INFORMATION
  Report Type: Spontaneous
  Country: US (occurrence: None)
  Receive Date: 20110527
  Receipt Date: 20121130
  Transmission Date: 20140414
  Serious: Yes (Hospitalization, Other)
  Sender: FDA-Public Use
  Company Number: US201005000625

PATIENT
  Sex: Male
  Weight: 142.4 kg

DRUGS (3)
  1. BYETTA [Suspect]
  2. EXENATIDE UNK STRENGTH PEN, DISPOSABLE DEVICE (EXENATIDE PEN (UNKNOWN STRENGTH)) PEN ,DISPOSABLE [Concomitant]
  3. METFORMIN HYDROCHLORIDE [Concomitant]

REACTIONS (3)
  - PANCREATITIS [None]
  - RENAL FAILURE ACUTE [None]
  - RENAL FAILURE [None]
